FAERS Safety Report 9874056 (Version 2)
Quarter: 2014Q1

REPORT INFORMATION
  Report Type: Spontaneous
  Country: US (occurrence: US)
  Receive Date: 20140206
  Receipt Date: 20140206
  Transmission Date: 20141002
  Serious: No
  Sender: FDA-Public Use
  Company Number: US-ACORDA-ACO_32474_2012

PATIENT
  Age: 53 Year
  Sex: Female
  Weight: 80.73 kg

DRUGS (5)
  1. AMPYRA [Suspect]
     Indication: GAIT DISTURBANCE
     Dosage: 10 MG, BID
     Route: 048
     Dates: start: 201206
  2. BETASERON [Concomitant]
     Indication: MULTIPLE SCLEROSIS
     Dosage: UNK
  3. TIZANIDINE HYDROCHLORIDE [Concomitant]
     Indication: MUSCLE SPASMS
     Dosage: UNK
  4. TERAZOSIN [Concomitant]
     Indication: MICTURITION URGENCY
     Dosage: UNK
  5. CLONAZEPAM [Concomitant]
     Indication: MUSCLE SPASMS
     Dosage: UNK

REACTIONS (5)
  - Cystitis [Unknown]
  - Micturition urgency [Unknown]
  - Urinary tract pain [Not Recovered/Not Resolved]
  - Pollakiuria [Unknown]
  - Drug ineffective [Unknown]
